FAERS Safety Report 16962405 (Version 1)
Quarter: 2019Q4

REPORT INFORMATION
  Report Type: Spontaneous
  Country: US (occurrence: US)
  Receive Date: 20190907
  Receipt Date: 20190907
  Transmission Date: 20200122
  Serious: No
  Sender: FDA-Public Use
  Company Number: None

PATIENT
  Age: 59 Year
  Sex: Male

DRUGS (1)
  1. SIROLIMUS TAB 1MG [Suspect]
     Active Substance: SIROLIMUS
     Dosage: ?          OTHER FREQUENCY:UNKNOWN;?
     Route: 048
     Dates: start: 201902

REACTIONS (1)
  - Transcription medication error [None]

NARRATIVE: CASE EVENT DATE: 20190211
